FAERS Safety Report 24842838 (Version 1)
Quarter: 2025Q1

REPORT INFORMATION
  Report Type: Report from Study
  Country: US (occurrence: US)
  Receive Date: 20250115
  Receipt Date: 20250115
  Transmission Date: 20250408
  Serious: Yes (Other)
  Sender: HRA PHARMA
  Company Number: US-ORG100014127-2024000292

PATIENT
  Age: 71 Year
  Sex: Female

DRUGS (7)
  1. LYSODREN [Suspect]
     Active Substance: MITOTANE
     Indication: Adrenal neoplasm
     Dosage: 2 TABLETS EVERY 8 HOURS
     Route: 048
     Dates: start: 20240925
  2. LYSODREN [Suspect]
     Active Substance: MITOTANE
     Indication: Adrenal neoplasm
     Dosage: 2 TABLETS TWICE DAILY
     Route: 048
     Dates: start: 2024
  3. Norvasc 10mg tablets [Concomitant]
     Indication: Product used for unknown indication
  4. Cisplatin 100mg inj, 100ml [Concomitant]
     Indication: Product used for unknown indication
  5. Doxorubicin 10mg inj, 1vial [Concomitant]
     Indication: Product used for unknown indication
  6. Etoposide 100mg/5ml inj, 5ml [Concomitant]
     Indication: Product used for unknown indication
  7. Janumet 50/1000mg tablets [Concomitant]
     Indication: Product used for unknown indication

REACTIONS (2)
  - Neuropathy peripheral [Not Recovered/Not Resolved]
  - Dysphagia [Not Recovered/Not Resolved]

NARRATIVE: CASE EVENT DATE: 20240930
